FAERS Safety Report 14619544 (Version 17)
Quarter: 2019Q2

REPORT INFORMATION
  Report Type: Spontaneous
  Country: CA (occurrence: CA)
  Receive Date: 20180309
  Receipt Date: 20190529
  Transmission Date: 20190711
  Serious: Yes (Hospitalization, Other)
  Sender: FDA-Public Use
  Company Number: CA-CELLTRION INC.-2018CA018408

PATIENT

DRUGS (9)
  1. INFLECTRA [Suspect]
     Active Substance: INFLIXIMAB-DYYB
     Dosage: 700 MG, EVERY 8 WEEKS
     Route: 042
     Dates: start: 20180529
  2. SULFASALAZINE. [Concomitant]
     Active Substance: SULFASALAZINE
     Dosage: 1.5 G, DAILY (DIE)
     Route: 065
  3. INFLECTRA [Suspect]
     Active Substance: INFLIXIMAB-DYYB
     Dosage: 700 MG, EVERY 8 WEEKS
     Route: 042
     Dates: start: 20190104
  4. METHOTREXATE. [Concomitant]
     Active Substance: METHOTREXATE
     Dosage: 25 MG, 1/WEEK
     Route: 065
  5. INFLECTRA [Suspect]
     Active Substance: INFLIXIMAB-DYYB
     Indication: PSORIATIC ARTHROPATHY
     Dosage: 700 MG, EVERY 2, 6 WEEKS, THEN EVERY 8 WEEKS
     Route: 042
     Dates: start: 20170421
  6. INFLECTRA [Suspect]
     Active Substance: INFLIXIMAB-DYYB
     Dosage: UNK
     Route: 042
     Dates: start: 20181109
  7. INFLECTRA [Suspect]
     Active Substance: INFLIXIMAB-DYYB
     Dosage: 700 MG, EVERY 8 WEEKS
     Route: 042
     Dates: start: 20180115
  8. INFLECTRA [Suspect]
     Active Substance: INFLIXIMAB-DYYB
     Dosage: 700 MG, EVERY 8 WEEKS
     Route: 042
     Dates: start: 20190329
  9. INFLECTRA [Suspect]
     Active Substance: INFLIXIMAB-DYYB
     Dosage: 700 MG, EVERY 8 WEEKS
     Route: 042
     Dates: start: 20180917

REACTIONS (25)
  - Gingival pain [Unknown]
  - Stomatitis [Not Recovered/Not Resolved]
  - Dyspnoea [Unknown]
  - Wound infection [Not Recovered/Not Resolved]
  - Respiration abnormal [Unknown]
  - Inappropriate schedule of product administration [Unknown]
  - Product use issue [Unknown]
  - Cardiac disorder [Unknown]
  - Pericardial effusion [Unknown]
  - Limb injury [Not Recovered/Not Resolved]
  - Arthralgia [Recovering/Resolving]
  - Wound secretion [Unknown]
  - Toothache [Unknown]
  - Musculoskeletal pain [Recovering/Resolving]
  - Varicose ulceration [Unknown]
  - Blister [Unknown]
  - Fatigue [Not Recovered/Not Resolved]
  - Oral pain [Unknown]
  - Dyspnoea exertional [Unknown]
  - Mobility decreased [Recovering/Resolving]
  - Feeling hot [Not Recovered/Not Resolved]
  - Off label use [Unknown]
  - Asthenia [Unknown]
  - Wound haemorrhage [Unknown]
  - Peripheral venous disease [Unknown]

NARRATIVE: CASE EVENT DATE: 20180529
